FAERS Safety Report 6647180-5 (Version None)
Quarter: 2010Q1

REPORT INFORMATION
  Report Type: 
  Country: None (occurrence: None)
  Receive Date: 20100323
  Receipt Date: 20100315
  Transmission Date: 20100710
  Serious: Yes (Hospitalization)
  Sender: FDA-Public Use
  Company Number: KR-ABBOTT-10P-090-0625100-00

PATIENT
  Age: 55 Year
  Sex: Female
  Weight: 47 kg

DRUGS (1)
  1. HUMIRA [Suspect]
     Indication: RHEUMATOID ARTHRITIS
     Dates: start: 20100126

REACTIONS (6)
  - DECREASED APPETITE [None]
  - DIARRHOEA [None]
  - PRURITUS [None]
  - PYREXIA [None]
  - RASH [None]
  - VOMITING [None]
